FAERS Safety Report 19904421 (Version 2)
Quarter: 2021Q4

REPORT INFORMATION
  Report Type: Spontaneous
  Country: GB (occurrence: GB)
  Receive Date: 20210930
  Receipt Date: 20211011
  Transmission Date: 20220303
  Serious: Yes (Other)
  Sender: FDA-Public Use
  Company Number: None

PATIENT
  Age: 61 Year
  Sex: Male
  Weight: 91 kg

DRUGS (10)
  1. GABAPENTIN [Suspect]
     Active Substance: GABAPENTIN
     Indication: Product used for unknown indication
     Dosage: 300 MILLIGRAM
     Route: 048
     Dates: start: 20210422
  2. BUTYLSCOPOLAMINE BROMIDE [Concomitant]
     Active Substance: BUTYLSCOPOLAMINE BROMIDE
     Indication: Feeling of relaxation
     Dosage: 2 DOSAGE FORM, QID
     Dates: start: 20201001
  3. CO-DYDRAMOL [Concomitant]
     Active Substance: ACETAMINOPHEN\DIHYDROCODEINE
     Indication: Pain
     Dosage: 1 DOSAGE FORM, QD (1-2 UP TO FOUR TIMES A DAY)
     Dates: start: 20201001
  4. NAPROXEN [Concomitant]
     Active Substance: NAPROXEN
     Dosage: 1 DOSAGE FORM, BID
     Dates: start: 20210506
  5. FLUOXETINE [Concomitant]
     Active Substance: FLUOXETINE HYDROCHLORIDE
     Indication: Anxiety
     Dosage: 2 DOSAGE FORM, QD
     Dates: start: 20201001
  6. AMITRIPTYLINE HYDROCHLORIDE [Concomitant]
     Active Substance: AMITRIPTYLINE HYDROCHLORIDE
     Indication: Headache
     Dosage: 1 DOSAGE FORM, QD (AT NIGHT)
     Dates: start: 20201001
  7. NITRAZEPAM [Concomitant]
     Active Substance: NITRAZEPAM
     Indication: Insomnia
     Dosage: 2 DOSAGE FORM, QD (AT NIGHT)
     Dates: start: 20201001
  8. LANSOPRAZOLE [Concomitant]
     Active Substance: LANSOPRAZOLE
     Indication: Dyspepsia
     Dosage: 1 DOSAGE FORM, BID
     Dates: start: 20201001
  9. DIAZEPAM [Concomitant]
     Active Substance: DIAZEPAM
     Dosage: 1 DOSAGE FORM, TID
     Dates: start: 20201001
  10. ATENOLOL [Concomitant]
     Active Substance: ATENOLOL
     Indication: Headache
     Dosage: 1 DOSAGE FORM, QD
     Dates: start: 20201001

REACTIONS (2)
  - Anger [Recovered/Resolved]
  - Suicidal ideation [Recovered/Resolved]

NARRATIVE: CASE EVENT DATE: 20210425
